FAERS Safety Report 13745197 (Version 2)
Quarter: 2017Q4

REPORT INFORMATION
  Report Type: Other
  Country: US (occurrence: US)
  Receive Date: 20170712
  Receipt Date: 20171125
  Transmission Date: 20180320
  Serious: No
  Sender: FDA-Public Use
  Company Number: US-GLENMARK PHARMACEUTICALS-2017GMK027800

PATIENT

DRUGS (1)
  1. RIZATRIPTAN BENZOATE. [Suspect]
     Active Substance: RIZATRIPTAN BENZOATE
     Indication: PRODUCT USED FOR UNKNOWN INDICATION
     Dosage: UNK
     Route: 065
     Dates: start: 20170202

REACTIONS (5)
  - Dry skin [Unknown]
  - Rash [Unknown]
  - Rash erythematous [Unknown]
  - Eczema [Unknown]
  - Product substitution issue [Unknown]
